FAERS Safety Report 7964382-6 (Version None)
Quarter: 2011Q4

REPORT INFORMATION
  Report Type: 
  Country: None (occurrence: None)
  Receive Date: 20111208
  Receipt Date: 20111205
  Transmission Date: 20120403
  Serious: Yes (Hospitalization)
  Sender: FDA-Public Use
  Company Number: IE-PFIZER INC-2011296996

PATIENT
  Age: 69 Year
  Sex: Male

DRUGS (2)
  1. LIPITOR [Suspect]
     Indication: ARTERIAL STENT INSERTION
     Dosage: 10 MG, UNK
  2. ACETYLSALICYLIC ACID [Concomitant]

REACTIONS (16)
  - VOMITING [None]
  - MYALGIA [None]
  - PANCREATITIS [None]
  - BURNING SENSATION [None]
  - MUSCLE ATROPHY [None]
  - FEELING COLD [None]
  - CHEST DISCOMFORT [None]
  - TREMOR [None]
  - HEADACHE [None]
  - PARAESTHESIA [None]
  - ASTHENIA [None]
  - CONSTIPATION [None]
  - PRURITUS [None]
  - VISION BLURRED [None]
  - INSOMNIA [None]
  - ERECTILE DYSFUNCTION [None]
